FAERS Safety Report 17028554 (Version 1)
Quarter: 2019Q4

REPORT INFORMATION
  Report Type: Spontaneous
  Country: US (occurrence: US)
  Receive Date: 20191113
  Receipt Date: 20191113
  Transmission Date: 20200122
  Serious: Yes (Other)
  Sender: FDA-Public Use
  Company Number: US-TEVA-2019-US-1135400

PATIENT
  Sex: Male

DRUGS (1)
  1. CALCITRIOL CAPSULE [Suspect]
     Active Substance: CALCITRIOL
     Dosage: 1 MICROGRAM DAILY;
     Route: 065
     Dates: start: 1989

REACTIONS (2)
  - Blood creatinine increased [Unknown]
  - Renal failure [Unknown]
